FAERS Safety Report 11409306 (Version 1)
Quarter: 2015Q3

REPORT INFORMATION
  Report Type: Spontaneous
  Country: US (occurrence: None)
  Receive Date: 20150820
  Receipt Date: 20150820
  Transmission Date: 20151125
  Serious: Yes (Other)
  Sender: FDA-Public Use
  Company Number: None

PATIENT
  Age: 5 Year
  Sex: Female

DRUGS (5)
  1. LAMICTAL XR [Concomitant]
     Active Substance: LAMOTRIGINE
  2. ZONEGRAN [Concomitant]
     Active Substance: ZONISAMIDE
  3. DIASTAT [Concomitant]
     Active Substance: DIAZEPAM
  4. LAMOTRIGINE. [Suspect]
     Active Substance: LAMOTRIGINE
     Indication: SEIZURE
     Dosage: 150 MG 1 QHS PO
     Route: 048
     Dates: start: 2009, end: 2009
  5. KLONOPIN [Concomitant]
     Active Substance: CLONAZEPAM

REACTIONS (1)
  - Seizure [None]

NARRATIVE: CASE EVENT DATE: 2009
